FAERS Safety Report 8459712 (Version 3)
Quarter: 2012Q4

REPORT INFORMATION
  Report Type: 
  Country: US (occurrence: US)
  Receive Date: 20120314
  Receipt Date: 20121122
  Transmission Date: 20130627
  Serious: Yes (Other)
  Sender: FDA-Public Use
  Company Number: US-ROCHE-1047421

PATIENT
  Sex: Female
  Weight: 53.57 kg

DRUGS (2)
  1. ACCUTANE [Suspect]
     Indication: ACNE
     Route: 065
     Dates: start: 20040629, end: 200502
  2. TRINESSA [Concomitant]

REACTIONS (4)
  - Inflammatory bowel disease [Unknown]
  - Colitis microscopic [Unknown]
  - Depression [Unknown]
  - Irritable bowel syndrome [Unknown]
